FAERS Safety Report 8186267-5 (Version None)
Quarter: 2012Q1

REPORT INFORMATION
  Report Type: 
  Country: None (occurrence: None)
  Receive Date: 20120301
  Receipt Date: 20120217
  Transmission Date: 20120608
  Serious: Yes (Other)
  Sender: FDA-Public Use
  Company Number: 216786

PATIENT
  Age: 60 Year
  Sex: Male

DRUGS (2)
  1. INNOHEP [Suspect]
     Indication: PROPHYLAXIS
     Dosage: 4500 IU,SUBCUTANEOUS
     Route: 058
     Dates: start: 20120201
  2. ANTIBIOTICS (ANTIBIOTICS) [Concomitant]

REACTIONS (2)
  - MALAISE [None]
  - THROMBOCYTOSIS [None]
